FAERS Safety Report 4941535-2 (Version None)
Quarter: 2006Q1

REPORT INFORMATION
  Report Type: 
  Country: None (occurrence: None)
  Receive Date: 20060307
  Receipt Date: 20060224
  Transmission Date: 20060701
  Serious: Yes (Hospitalization, Other)
  Sender: FDA-Public Use
  Company Number: HQWYE626402FEB06

PATIENT
  Age: 43 Year
  Sex: Female

DRUGS (17)
  1. RAPAMUNE [Suspect]
     Indication: PROPHYLAXIS AGAINST TRANSPLANT REJECTION
     Dosage: 6 MG 1X PER 1 DAY ORAL
     Route: 048
     Dates: start: 20051127
  2. RAPAMUNE [Suspect]
  3. ALLOPURINOL [Concomitant]
  4. SUMETROLIM (SULFAMETHOXAZOLE/TRIMETHOPRIM) [Concomitant]
  5. VALGANCICLOVIR (VALGANCICLOVIR) [Concomitant]
  6. FAMOTIDINE [Concomitant]
  7. FLUVASTATIN (FLUVASTATIN) [Concomitant]
  8. PERINDOPRIL (PERINDOPRIL) [Concomitant]
  9. BISOPROLOL (BISOPROLOL) [Concomitant]
  10. RILMENIDINE (RILMENIDINE) [Concomitant]
  11. PRAZOSIN GITS [Concomitant]
  12. NIFEDIPINE [Concomitant]
  13. CELLCEPT [Concomitant]
  14. METHYLPREDNISOLONE [Concomitant]
  15. METHYLPREDNISOLONE [Concomitant]
  16. METHYLPREDNISOLONE [Concomitant]
  17. METHYLPREDNISOLONE [Concomitant]

REACTIONS (1)
  - SEROMA [None]
